FAERS Safety Report 7690230-8 (Version None)
Quarter: 2011Q3

REPORT INFORMATION
  Report Type: 
  Country: None (occurrence: None)
  Receive Date: 20110818
  Receipt Date: 20110810
  Transmission Date: 20111222
  Serious: Yes (Death, Hospitalization)
  Sender: FDA-Public Use
  Company Number: BR-BAYER-2011-061631

PATIENT
  Age: 86 Year
  Sex: Male
  Weight: 80 kg

DRUGS (10)
  1. ANTIBIOTICS [Concomitant]
  2. ANCORON [Concomitant]
     Indication: ARRHYTHMIA
     Dosage: 200 MG, QD
     Route: 048
     Dates: start: 20110601
  3. DIPYRONE [Concomitant]
     Indication: HEPATIC PAIN
     Dosage: UNK UNK, PRN
     Route: 048
     Dates: start: 20110701
  4. DIURETICS [Concomitant]
  5. ANCORON [Concomitant]
     Dosage: 200 MG, QD
     Route: 048
     Dates: start: 20110727
  6. ALLEGRA [Concomitant]
     Indication: ALLERGY PROPHYLAXIS
     Dosage: 180 MG, QD
     Route: 048
     Dates: start: 20110703
  7. EMOLLIENTS AND PROTECTIVES [Concomitant]
     Indication: ALLERGY PROPHYLAXIS
     Dosage: UNK
     Route: 061
  8. OMEPRAZOLE [Concomitant]
     Indication: GASTRIC DISORDER
     Dosage: 10 ML, QD
     Route: 048
  9. TRAMADOL HYDROCHLORIDE [Concomitant]
     Indication: HEPATIC PAIN
     Dosage: UNK
     Dates: start: 20110701, end: 20110712
  10. NEXAVAR [Suspect]
     Indication: HEPATIC NEOPLASM MALIGNANT
     Dosage: 400 MG, BID
     Route: 048
     Dates: start: 20110707, end: 20110714

REACTIONS (13)
  - DEATH [None]
  - EATING DISORDER [None]
  - DYSPNOEA [None]
  - DYSURIA [None]
  - PULMONARY OEDEMA [None]
  - HEPATIC ENZYME INCREASED [None]
  - ASTHENIA [None]
  - OEDEMA PERIPHERAL [None]
  - ABDOMINAL DISTENSION [None]
  - PYREXIA [None]
  - JAUNDICE [None]
  - SOMNOLENCE [None]
  - PLEURAL EFFUSION [None]
